FAERS Safety Report 14171680 (Version 1)
Quarter: 2017Q4

REPORT INFORMATION
  Report Type: Spontaneous
  Country: IN (occurrence: IN)
  Receive Date: 20171108
  Receipt Date: 20171108
  Transmission Date: 20180321
  Serious: Yes (Other)
  Sender: FDA-Public Use
  Company Number: IN-BAUSCH-BL-2017-030990

PATIENT
  Age: 54 Year
  Sex: Female

DRUGS (1)
  1. FLUOROURACIL. [Suspect]
     Active Substance: FLUOROURACIL
     Indication: BREAST CANCER
     Dosage: 6 CYCLICAL
     Route: 042
     Dates: start: 2006

REACTIONS (7)
  - Alopecia [Unknown]
  - Anaemia [Unknown]
  - Temperature intolerance [Unknown]
  - Weight decreased [Unknown]
  - Decreased appetite [Unknown]
  - Leukopenia [Unknown]
  - Injection site discolouration [Unknown]
